FAERS Safety Report 8578083-7 (Version None)
Quarter: 2012Q3

REPORT INFORMATION
  Report Type: 
  Country: None (occurrence: None)
  Receive Date: 20120808
  Receipt Date: 20120807
  Transmission Date: 20120928
  Serious: Yes (Hospitalization, Other)
  Sender: FDA-Public Use
  Company Number: PHEH2007US12178

PATIENT
  Sex: Male
  Weight: 78.912 kg

DRUGS (92)
  1. B-COMPLEX ^KRKA^ [Concomitant]
  2. ATENOLOL [Concomitant]
  3. MORPHINE SULFATE [Concomitant]
  4. NPH INSULIN [Concomitant]
  5. BACTRIM [Concomitant]
  6. FLAGYL ^RHONE-POULENC RORER^ [Concomitant]
  7. CATHFLO ACTIVASE [Concomitant]
  8. ZOFRAN [Concomitant]
  9. ALLOPURINOL [Concomitant]
  10. ZESTRIL [Concomitant]
  11. DURAGESIC-100 [Concomitant]
     Dosage: 200 MG
     Dates: start: 20040519
  12. LIORESAL [Concomitant]
  13. ZANAFLEX [Concomitant]
  14. TIZANIDINE HYDROCHLORIDE [Concomitant]
  15. PEPCID [Concomitant]
  16. ENALAPRIL MALEATE [Concomitant]
  17. LANTUS [Concomitant]
  18. BENADRYL ^ACHE^ [Concomitant]
  19. LOPERAMIDE [Concomitant]
  20. VITAMIN TAB [Concomitant]
  21. PRILOSEC [Concomitant]
  22. MIRALAX [Concomitant]
  23. LOVENOX [Concomitant]
  24. PIOGLITAZONE [Concomitant]
  25. MORPHINE SULFATE [Concomitant]
  26. METFORMIN HYDROCHLORIDE [Concomitant]
     Dosage: 1500 MG, BID
  27. LISINOPRIL [Concomitant]
  28. SULFAMETHOXAZOLE AND TRIMETHOPRIM [Concomitant]
  29. GABAPENTIN [Concomitant]
  30. PRAVASTATIN [Concomitant]
  31. TYLENOL [Concomitant]
  32. CALCIUM CARBONATE W/VITAMIN D NOS [Concomitant]
  33. ASTRAMORPH PF [Concomitant]
  34. ZANTAC [Concomitant]
  35. SENNA-MINT WAF [Concomitant]
  36. MULTI-VITAMINS [Concomitant]
  37. CHEMOTHERAPEUTICS NOS [Concomitant]
  38. THALIDOMIDE [Concomitant]
     Dosage: 200 MG
     Dates: start: 20040617
  39. ACTOS [Concomitant]
     Dosage: 15 MG, QD
  40. RIMANTADINE HYDROCHLORIDE [Concomitant]
  41. FLUOXETINE HCL [Concomitant]
  42. FLUTICASONE FUROATE [Concomitant]
  43. CHLORHEXIDINE GLUCONATE [Concomitant]
  44. FENTANYL [Concomitant]
  45. PENICILLIN ^GRUNENTHAL^ [Concomitant]
  46. ATIVAN [Concomitant]
  47. MICRO-K [Concomitant]
  48. GLUCOPHAGE [Concomitant]
  49. RADIOTHERAPY [Concomitant]
     Dates: start: 20040419, end: 20040501
  50. MS CONTIN [Concomitant]
  51. NEURONTIN [Concomitant]
  52. LACTULOSE [Concomitant]
  53. DURAGESIC-100 [Concomitant]
     Dates: end: 20040519
  54. TENORMIN [Concomitant]
  55. ACTIQ [Concomitant]
  56. LIDODERM [Concomitant]
  57. RADIATION THERAPY [Concomitant]
  58. BACLOFEN [Concomitant]
  59. DEXAMETHASONE [Concomitant]
     Dosage: 4 MG, Q6H
     Dates: end: 20040519
  60. ZOMETA [Suspect]
     Indication: MULTIPLE MYELOMA
     Dosage: 4 MG
     Route: 042
     Dates: start: 20050315, end: 20070601
  61. ALKERAN [Suspect]
  62. PERCOCET [Concomitant]
     Dosage: 1 DF, PRN
  63. INSULIN HUMAN [Concomitant]
  64. DILAUDID [Concomitant]
  65. NAPROXEN [Concomitant]
  66. NOVOLOG [Concomitant]
  67. MAGNESIUM SULFATE [Concomitant]
  68. OXYCONTIN [Concomitant]
     Dosage: 20 MG, BID
     Dates: start: 20040409
  69. COLACE [Concomitant]
  70. LANTUS [Concomitant]
  71. DULCOLAX [Concomitant]
  72. SENOKOT                                 /UNK/ [Concomitant]
  73. GLYBURIDE [Concomitant]
  74. DEXAMETHASONE [Concomitant]
     Dosage: 4 MG, Q6H
     Dates: start: 20040519
  75. ROXANOL [Concomitant]
  76. AMBIEN [Concomitant]
  77. HYDROCODONE BITARTRATE + ACETAMINOPHEN [Concomitant]
  78. ACYCLOVIR [Concomitant]
  79. AMOXICILLIN [Concomitant]
  80. MIRTAZAPINE [Concomitant]
  81. LOVAZA [Concomitant]
  82. ARMODAFINIL [Concomitant]
  83. MAALOX                                  /NET/ [Concomitant]
  84. GLIPIZIDE [Concomitant]
  85. REGLAN [Concomitant]
  86. DURAMORPH PF [Concomitant]
  87. PROTONIX [Concomitant]
  88. FLEXERIL [Concomitant]
  89. PREDNISONE [Concomitant]
  90. LEVAQUIN [Concomitant]
  91. METHADONE HYDROCHLORIDE [Concomitant]
  92. MAXIPIME [Concomitant]

REACTIONS (90)
  - BUNDLE BRANCH BLOCK LEFT [None]
  - BLOOD UREA INCREASED [None]
  - HYPERHIDROSIS [None]
  - DYSPNOEA [None]
  - ASTHENIA [None]
  - JOINT SWELLING [None]
  - GLAUCOMA [None]
  - RENAL MASS [None]
  - VIITH NERVE PARALYSIS [None]
  - OSTEONECROSIS OF JAW [None]
  - EMOTIONAL DISTRESS [None]
  - BACK PAIN [None]
  - CHRONIC OBSTRUCTIVE PULMONARY DISEASE [None]
  - INGUINAL HERNIA [None]
  - OSTEOARTHRITIS [None]
  - COUGH [None]
  - BRAIN NEOPLASM [None]
  - ANAEMIA [None]
  - DIARRHOEA [None]
  - URINARY TRACT INFECTION [None]
  - CONSTIPATION [None]
  - LEFT VENTRICULAR HYPERTROPHY [None]
  - BONE PAIN [None]
  - CAUDA EQUINA SYNDROME [None]
  - CARDIAC FAILURE CONGESTIVE [None]
  - HYPERGLYCAEMIA [None]
  - MUSCULAR WEAKNESS [None]
  - BLOOD PRESSURE [None]
  - DEPRESSION [None]
  - SMALL INTESTINAL OBSTRUCTION [None]
  - EXOSTOSIS [None]
  - LIGHT CHAIN ANALYSIS INCREASED [None]
  - INTERVERTEBRAL DISC DEGENERATION [None]
  - HEPATIC STEATOSIS [None]
  - CARDIOMEGALY [None]
  - HYPOVOLAEMIA [None]
  - DISCOMFORT [None]
  - PLEURAL EFFUSION [None]
  - PALPITATIONS [None]
  - MYELITIS TRANSVERSE [None]
  - RENAL COLIC [None]
  - POST LAMINECTOMY SYNDROME [None]
  - ARTHROPATHY [None]
  - HAEMORRHAGE [None]
  - HERPES SIMPLEX [None]
  - DIVERTICULUM [None]
  - HYPOTENSION [None]
  - ANXIETY [None]
  - COMPRESSION FRACTURE [None]
  - LUMBAR SPINAL STENOSIS [None]
  - CEREBROVASCULAR ACCIDENT [None]
  - HYPERTENSION [None]
  - ATELECTASIS [None]
  - POLYURIA [None]
  - ABDOMINAL PAIN [None]
  - HYPOAESTHESIA [None]
  - KYPHOSIS [None]
  - SPINAL COLUMN STENOSIS [None]
  - HEMIPARESIS [None]
  - ARTHRALGIA [None]
  - MYOFASCIAL PAIN SYNDROME [None]
  - SPINAL COMPRESSION FRACTURE [None]
  - UROSEPSIS [None]
  - OSTEONECROSIS [None]
  - PAIN [None]
  - PLEURAL FIBROSIS [None]
  - HAEMATOCHEZIA [None]
  - INCONTINENCE [None]
  - INTERVERTEBRAL DISC PROTRUSION [None]
  - FATIGUE [None]
  - PNEUMONIA [None]
  - RENAL FAILURE CHRONIC [None]
  - DEHYDRATION [None]
  - RECTAL HAEMORRHAGE [None]
  - FAECAL INCONTINENCE [None]
  - BUNDLE BRANCH BLOCK RIGHT [None]
  - SINUS TACHYCARDIA [None]
  - NEPHROLITHIASIS [None]
  - GASTROOESOPHAGEAL REFLUX DISEASE [None]
  - FLUID OVERLOAD [None]
  - OSTEOPENIA [None]
  - ASPIRATION BONE MARROW [None]
  - SCIATICA [None]
  - SPONDYLITIS [None]
  - LARGE INTESTINAL HAEMORRHAGE [None]
  - OSTEOPOROSIS [None]
  - METABOLIC ACIDOSIS [None]
  - THROMBOCYTOPENIA [None]
  - HIATUS HERNIA [None]
  - ACUTE RESPIRATORY FAILURE [None]
